FAERS Safety Report 8343584-3 (Version None)
Quarter: 2012Q2

REPORT INFORMATION
  Report Type: 
  Country: None (occurrence: None)
  Receive Date: 20120508
  Receipt Date: 20120502
  Transmission Date: 20120825
  Serious: Yes (Hospitalization)
  Sender: FDA-Public Use
  Company Number: JP-CELGENEUS-087-FK228-12041510

PATIENT
  Sex: Female
  Weight: 34.4 kg

DRUGS (21)
  1. SODIUM AZULENE SULFONATE [Concomitant]
     Indication: PERIPHERAL T-CELL LYMPHOMA UNSPECIFIED
     Dosage: 3 GRAM
     Route: 048
     Dates: start: 20120123
  2. BROTIZOLAM [Concomitant]
     Indication: INSOMNIA
     Dosage: .25 MILLIGRAM
     Route: 048
     Dates: start: 20120221
  3. GRANISETRON HCL [Concomitant]
     Dosage: 3 MILLIGRAM
     Route: 050
     Dates: start: 20120413, end: 20120413
  4. SODIUM ALGINATE [Concomitant]
     Indication: PERIPHERAL T-CELL LYMPHOMA UNSPECIFIED
     Dosage: 120 MILLILITER
     Route: 048
     Dates: start: 20100101
  5. ACETAMINOPHEN [Concomitant]
     Indication: TUMOUR ASSOCIATED FEVER
     Dosage: 400 MILLIGRAM
     Route: 048
     Dates: start: 20120212
  6. SENNOSIDE A+B [Concomitant]
     Indication: CONSTIPATION
     Dosage: 12 MILLIGRAM
     Route: 048
     Dates: start: 20120316
  7. SODIUM PICOSULFATE HYDRATE [Concomitant]
     Indication: CONSTIPATION
     Dosage: 1 TIME
     Route: 048
     Dates: start: 20120329
  8. UREA [Concomitant]
     Indication: DRY SKIN
     Dosage: ADEQUATE DOSE
     Route: 061
     Dates: start: 20120402
  9. ROMIDEPSIN [Suspect]
     Dosage: 17.4 MILLIGRAM
     Route: 041
     Dates: start: 20120404
  10. SODIUM GUALENATE HYDRATE [Concomitant]
     Dosage: 8 TIMES
     Route: 061
     Dates: start: 20120312
  11. TRAMADOL HCL [Concomitant]
     Indication: CANCER PAIN
     Dosage: 100 MILLIGRAM
     Route: 048
     Dates: start: 20120409, end: 20120411
  12. SULFAMETHOXAZOLE AND TRIMETHOPRIM [Concomitant]
     Indication: INFECTION PROPHYLAXIS
     Dosage: 1 TABLET
     Route: 048
     Dates: start: 20100101
  13. LIDOCAINE HYDROCHLORIDE [Concomitant]
     Dosage: 8 TIMES
     Route: 061
     Dates: start: 20120316
  14. LANSOPRAZOLE [Concomitant]
     Indication: PERIPHERAL T-CELL LYMPHOMA UNSPECIFIED
     Dosage: 15 MILLIGRAM
     Route: 048
     Dates: start: 20120327
  15. ENTERAL NUTRITION [Concomitant]
     Indication: NUTRITIONAL SUPPORT
     Route: 048
     Dates: start: 20120331, end: 20120414
  16. ROMIDEPSIN [Suspect]
     Dosage: 17.4 MILLIGRAM
     Route: 041
     Dates: start: 20120413
  17. MAGNESIUM OXIDE [Concomitant]
     Indication: CONSTIPATION
     Dosage: 990 MILLIGRAM
     Route: 048
     Dates: start: 20120202
  18. LOXOPROFEN SODIUM HYDRATE [Concomitant]
     Dosage: 60 MILLIGRAM
     Route: 048
     Dates: start: 20120314
  19. PROCHLORPERAZINE MALEATE [Concomitant]
     Dosage: 5-15MG
     Route: 048
     Dates: start: 20120322
  20. ROMIDEPSIN [Suspect]
     Indication: PERIPHERAL T-CELL LYMPHOMA UNSPECIFIED
     Dosage: 17.4 MILLIGRAM
     Route: 041
     Dates: start: 20120328
  21. PANTETHINE [Concomitant]
     Indication: CONSTIPATION
     Dosage: 300 MILLIGRAM
     Route: 048
     Dates: start: 20100101

REACTIONS (1)
  - GASTROINTESTINAL HAEMORRHAGE [None]
